FAERS Safety Report 7100384-X (Version None)
Quarter: 2010Q4

REPORT INFORMATION
  Report Type: 
  Country: None (occurrence: None)
  Receive Date: 20101112
  Receipt Date: 20101102
  Transmission Date: 20110411
  Serious: Yes (Hospitalization, Other)
  Sender: FDA-Public Use
  Company Number: PHHY2009ZA28510

PATIENT
  Sex: Female

DRUGS (1)
  1. ACLASTA [Suspect]
     Indication: OSTEOPOROSIS
     Dosage: 5 MG/100 ML
     Dates: start: 20090708

REACTIONS (23)
  - CARDIAC DISORDER [None]
  - CYST [None]
  - CYSTITIS [None]
  - FACE OEDEMA [None]
  - FATIGUE [None]
  - FEELING ABNORMAL [None]
  - FLUID INTAKE REDUCED [None]
  - GAIT DISTURBANCE [None]
  - GENERALISED OEDEMA [None]
  - HEART RATE IRREGULAR [None]
  - HYPOKINESIA [None]
  - HYPOPHAGIA [None]
  - INFLUENZA [None]
  - INSOMNIA [None]
  - MALAISE [None]
  - METASTASES TO LIVER [None]
  - MIGRAINE [None]
  - NAUSEA [None]
  - OEDEMA PERIPHERAL [None]
  - PAIN [None]
  - POLLAKIURIA [None]
  - PYELONEPHRITIS [None]
  - VOMITING [None]
